FAERS Safety Report 17251041 (Version 1)
Quarter: 2019Q4

REPORT INFORMATION
  Report Type: Spontaneous
  Country: US (occurrence: US)
  Receive Date: 20191216
  Receipt Date: 20191216
  Transmission Date: 20200122
  Serious: Yes (Hospitalization)
  Sender: FDA-Public Use
  Company Number: None

PATIENT
  Sex: Male

DRUGS (1)
  1. CAPECITABINE 500MG [Suspect]
     Active Substance: CAPECITABINE
     Indication: COLON CANCER
     Dosage: ?          OTHER FREQUENCY:8TABS/DAYFOR14DAYS;?
     Route: 048
     Dates: start: 20191017

REACTIONS (4)
  - Dehydration [None]
  - Diarrhoea [None]
  - Device related sepsis [None]
  - Device related infection [None]
